FAERS Safety Report 13388665 (Version 1)
Quarter: 2017Q1

REPORT INFORMATION
  Report Type: Spontaneous
  Country: FR (occurrence: FR)
  Receive Date: 20170330
  Receipt Date: 20170330
  Transmission Date: 20170429
  Serious: Yes (Hospitalization, Other)
  Sender: FDA-Public Use
  Company Number: FR-REGENERON PHARMACEUTICALS, INC.-2017-13757

PATIENT

DRUGS (7)
  1. PULMICORT TURBUHALER [Concomitant]
     Active Substance: BUDESONIDE
     Indication: PRODUCT USED FOR UNKNOWN INDICATION
     Dosage: 1 DF, QD
     Route: 055
  2. LUCENTIS [Suspect]
     Active Substance: RANIBIZUMAB
     Dosage: 1 DF, UNK
     Route: 021
     Dates: start: 201601
  3. DAFALGAN [Concomitant]
     Active Substance: ACETAMINOPHEN
     Indication: PRODUCT USED FOR UNKNOWN INDICATION
     Route: 048
  4. EYLEA [Suspect]
     Active Substance: AFLIBERCEPT
     Indication: AGE-RELATED MACULAR DEGENERATION
  5. LUCENTIS [Suspect]
     Active Substance: RANIBIZUMAB
     Indication: RETINAL VEIN OCCLUSION
     Dosage: 1 DF, Q1MON
     Route: 021
     Dates: start: 201412, end: 201505
  6. EYLEA [Suspect]
     Active Substance: AFLIBERCEPT
     Indication: RETINAL VEIN OCCLUSION
     Dosage: 1 DF, Q2MON
     Route: 031
     Dates: start: 201506, end: 201512
  7. FLECAINE [Concomitant]
     Active Substance: FLECAINIDE
     Indication: PRODUCT USED FOR UNKNOWN INDICATION
     Dosage: 150 MG, QD
     Dates: start: 2012

REACTIONS (3)
  - Rheumatic disorder [Not Recovered/Not Resolved]
  - Sjogren^s syndrome [Not Recovered/Not Resolved]
  - Connective tissue inflammation [Not Recovered/Not Resolved]

NARRATIVE: CASE EVENT DATE: 20160711
